FAERS Safety Report 19982842 (Version 1)
Quarter: 2021Q4

REPORT INFORMATION
  Report Type: Spontaneous
  Country: US (occurrence: US)
  Receive Date: 20211021
  Receipt Date: 20211021
  Transmission Date: 20220303
  Serious: Yes (Hospitalization)
  Sender: FDA-Public Use
  Company Number: US-ROCHE-2940885

PATIENT
  Sex: Male

DRUGS (3)
  1. XOLAIR [Suspect]
     Active Substance: OMALIZUMAB
     Indication: Product used for unknown indication
     Route: 065
  2. DUPILUMAB [Suspect]
     Active Substance: DUPILUMAB
     Indication: Asthma
     Route: 058
     Dates: start: 20190514, end: 20190514
  3. DUPILUMAB [Suspect]
     Active Substance: DUPILUMAB
     Dosage: EVERY OTHER WEEK
     Route: 058
     Dates: start: 20190528

REACTIONS (2)
  - Pulmonary oedema [Unknown]
  - Nasopharyngitis [Not Recovered/Not Resolved]
